FAERS Safety Report 22044117 (Version 1)
Quarter: 2023Q1

REPORT INFORMATION
  Report Type: Spontaneous
  Country: US (occurrence: US)
  Receive Date: 20230228
  Receipt Date: 20230228
  Transmission Date: 20230417
  Serious: No
  Sender: FDA-Public Use
  Company Number: US-AMNEAL PHARMACEUTICALS-2022-AMRX-02769

PATIENT
  Sex: Male
  Weight: 66.7 kg

DRUGS (8)
  1. ABIRATERONE ACETATE [Suspect]
     Active Substance: ABIRATERONE ACETATE
     Indication: Prostate cancer
     Dosage: 1000 MILLIGRAM, QD
     Route: 065
     Dates: start: 20220608, end: 20220717
  2. ABIRATERONE ACETATE [Suspect]
     Active Substance: ABIRATERONE ACETATE
     Dosage: 750 MILLIGRAM, QD
     Route: 065
     Dates: start: 20220718, end: 2022
  3. ABIRATERONE ACETATE [Suspect]
     Active Substance: ABIRATERONE ACETATE
     Dosage: 1000 MILLIGRAM, QD
     Route: 065
     Dates: start: 2022, end: 2022
  4. ABIRATERONE ACETATE [Suspect]
     Active Substance: ABIRATERONE ACETATE
     Dosage: 750 MILLIGRAM, QD
     Route: 065
     Dates: start: 20220817
  5. RELUGOLIX [Suspect]
     Active Substance: RELUGOLIX
     Indication: Prostate cancer
     Dosage: 360 MILLIGRAM
     Route: 048
     Dates: start: 20220608, end: 20220608
  6. RELUGOLIX [Suspect]
     Active Substance: RELUGOLIX
     Dosage: 120 MILLIGRAM, QD
     Route: 048
     Dates: start: 20220609
  7. RELUGOLIX [Suspect]
     Active Substance: RELUGOLIX
     Dosage: UNK
     Route: 048
  8. RELUGOLIX [Suspect]
     Active Substance: RELUGOLIX
     Dosage: UNK
     Route: 048

REACTIONS (14)
  - Weight decreased [Not Recovered/Not Resolved]
  - Lymphocyte count decreased [Unknown]
  - Glomerular filtration rate decreased [Unknown]
  - Electrocardiogram abnormal [Unknown]
  - Libido decreased [Unknown]
  - Toothache [Unknown]
  - Product dose omission issue [Unknown]
  - Incorrect dosage administered [Unknown]
  - Abdominal distension [Unknown]
  - Abdominal pain upper [Unknown]
  - Diarrhoea [Not Recovered/Not Resolved]
  - Hot flush [Unknown]
  - Fatigue [Not Recovered/Not Resolved]
  - Nocturia [Not Recovered/Not Resolved]

NARRATIVE: CASE EVENT DATE: 20220101
